FAERS Safety Report 21976135 (Version 1)
Quarter: 2023Q1

REPORT INFORMATION
  Report Type: Spontaneous
  Country: US (occurrence: US)
  Receive Date: 20230210
  Receipt Date: 20230210
  Transmission Date: 20230418
  Serious: No
  Sender: FDA-Public Use
  Company Number: US-AMGEN-USASP2022228590

PATIENT
  Sex: Female

DRUGS (2)
  1. REPATHA [Suspect]
     Active Substance: EVOLOCUMAB
     Indication: Pulmonary embolism
     Dosage: 140 MILLIGRAM, Q2WK
     Route: 058
     Dates: start: 20220424
  2. REPATHA [Suspect]
     Active Substance: EVOLOCUMAB
     Indication: Cor pulmonale acute

REACTIONS (2)
  - Product dose omission issue [Recovered/Resolved]
  - Off label use [Unknown]
